FAERS Safety Report 24281388 (Version 2)
Quarter: 2024Q3

REPORT INFORMATION
  Report Type: Spontaneous
  Country: US (occurrence: US)
  Receive Date: 20240904
  Receipt Date: 20240913
  Transmission Date: 20241016
  Serious: Yes (Other)
  Sender: CATALYST PHARMA
  Company Number: US-CATALYSTPHARMACEUTICALPARTNERS-US-CATA-24-00951

PATIENT
  Sex: Female
  Weight: 39 kg

DRUGS (8)
  1. FYCOMPA [Suspect]
     Active Substance: PERAMPANEL
     Indication: Partial seizures
     Dosage: 2 MG QHS
     Route: 048
     Dates: start: 20240401, end: 2024
  2. FYCOMPA [Suspect]
     Active Substance: PERAMPANEL
     Indication: Ventriculo-peritoneal shunt
     Dosage: 6 MG EVERY NIGHT
     Route: 048
     Dates: start: 20240905
  3. FYCOMPA [Suspect]
     Active Substance: PERAMPANEL
     Indication: Cerebral palsy
  4. FYCOMPA [Suspect]
     Active Substance: PERAMPANEL
     Indication: Hydrocephalus
  5. FYCOMPA [Suspect]
     Active Substance: PERAMPANEL
     Indication: Infantile spasms
  6. BRIVIACT [Concomitant]
     Active Substance: BRIVARACETAM
     Indication: Product used for unknown indication
     Dosage: 100 MG BID
     Route: 065
  7. ONFI [Concomitant]
     Active Substance: CLOBAZAM
     Indication: Product used for unknown indication
     Dosage: 2.5 MG
     Route: 065
  8. CLOBAZAM [Concomitant]
     Active Substance: CLOBAZAM
     Indication: Product used for unknown indication
     Dosage: 5 MG TID
     Route: 048

REACTIONS (4)
  - Change in seizure presentation [Recovered/Resolved]
  - Febrile infection [Recovered/Resolved]
  - Pharyngitis streptococcal [Recovered/Resolved]
  - Off label use [Unknown]

NARRATIVE: CASE EVENT DATE: 20240101
